FAERS Safety Report 9663913 (Version 1)
Quarter: 2013Q4

REPORT INFORMATION
  Report Type: Spontaneous
  Country: US (occurrence: US)
  Receive Date: 20131101
  Receipt Date: 20131101
  Transmission Date: 20140711
  Serious: Yes (Death, Hospitalization)
  Sender: FDA-Public Use
  Company Number: PHHY2013US123290

PATIENT
  Age: 34 Year
  Sex: Female

DRUGS (3)
  1. PARACETAMOL [Suspect]
     Indication: BACK PAIN
  2. TENOFOVIR [Suspect]
     Indication: HIV INFECTION
  3. EMTRICITABINE [Suspect]
     Indication: HIV INFECTION

REACTIONS (9)
  - Lactic acidosis [Fatal]
  - Cardiac arrest [Fatal]
  - Pulseless electrical activity [Fatal]
  - Somnolence [Fatal]
  - Confusional state [Fatal]
  - Tachycardia [Fatal]
  - Hypotension [Fatal]
  - Blood lactic acid increased [Fatal]
  - Blood pH decreased [Fatal]
